FAERS Safety Report 19675520 (Version 1)
Quarter: 2021Q3

REPORT INFORMATION
  Report Type: Report from Study
  Country: None (occurrence: CO)
  Receive Date: 20210809
  Receipt Date: 20210809
  Transmission Date: 20211014
  Serious: Yes (Other)
  Sender: FDA-Public Use
  Company Number: CO-ABBVIE-21K-036-3989943-00

PATIENT
  Age: 51 Year
  Sex: Female
  Weight: 52 kg

DRUGS (2)
  1. HUMIRA [Suspect]
     Active Substance: ADALIMUMAB
     Indication: HIDRADENITIS
     Route: 058
     Dates: end: 20210530
  2. HUMIRA [Suspect]
     Active Substance: ADALIMUMAB
     Indication: HIDRADENITIS
     Route: 058
     Dates: start: 20161219

REACTIONS (21)
  - Oropharyngeal discomfort [Recovering/Resolving]
  - Dry throat [Recovering/Resolving]
  - Back pain [Recovering/Resolving]
  - Hypokinesia [Recovering/Resolving]
  - Productive cough [Recovering/Resolving]
  - Burning sensation [Recovering/Resolving]
  - Hypersensitivity [Recovering/Resolving]
  - Insomnia [Recovering/Resolving]
  - Dysphagia [Recovering/Resolving]
  - Ocular hypertension [Recovering/Resolving]
  - COVID-19 [Recovering/Resolving]
  - Ear pain [Recovering/Resolving]
  - Irritable bowel syndrome [Recovering/Resolving]
  - Gastrointestinal disorder [Unknown]
  - Visual impairment [Recovering/Resolving]
  - Swelling [Recovering/Resolving]
  - Blood cholesterol increased [Recovering/Resolving]
  - Ear discomfort [Recovering/Resolving]
  - Pain [Recovering/Resolving]
  - Eye pain [Recovering/Resolving]
  - Arthralgia [Recovering/Resolving]

NARRATIVE: CASE EVENT DATE: 2019
